FAERS Safety Report 13108999 (Version 1)
Quarter: 2017Q1

REPORT INFORMATION
  Report Type: Spontaneous
  Country: CN (occurrence: CN)
  Receive Date: 20170112
  Receipt Date: 20170112
  Transmission Date: 20170428
  Serious: Yes (Other)
  Sender: FDA-Public Use
  Company Number: CN-PFIZER INC-2017011139

PATIENT
  Age: 72 Year
  Sex: Female
  Weight: 54 kg

DRUGS (1)
  1. LIPITOR [Suspect]
     Active Substance: ATORVASTATIN CALCIUM
     Indication: HYPERLIPIDAEMIA
     Dosage: 20 MG, 1X/DAY
     Route: 048
     Dates: start: 20160902, end: 20161028

REACTIONS (1)
  - Amnesia [Recovering/Resolving]

NARRATIVE: CASE EVENT DATE: 20161028
